FAERS Safety Report 19859750 (Version 1)
Quarter: 2021Q3

REPORT INFORMATION
  Report Type: Spontaneous
  Country: US (occurrence: US)
  Receive Date: 20210920
  Receipt Date: 20210920
  Transmission Date: 20211014
  Serious: Yes (Hospitalization)
  Sender: FDA-Public Use
  Company Number: None

PATIENT
  Sex: Male

DRUGS (6)
  1. MARY RUTH^S VITAMIN C [Concomitant]
  2. BENADRYL [Concomitant]
     Active Substance: DIPHENHYDRAMINE HYDROCHLORIDE
  3. SKINESA PROBIOTIC [Concomitant]
  4. TRIAMCINOLONE ACETONIDE 0.1% [Suspect]
     Active Substance: TRIAMCINOLONE ACETONIDE
     Indication: ECZEMA
     Route: 061
     Dates: start: 20170607, end: 20171105
  5. PROTANDIM NRF2 [Concomitant]
  6. X?FACTOR CHEWABLES [Concomitant]

REACTIONS (6)
  - Croup infectious [None]
  - Beta haemolytic streptococcal infection [None]
  - Food allergy [None]
  - Skin ulcer [None]
  - Steroid withdrawal syndrome [None]
  - Eczema [None]
